FAERS Safety Report 6299466-4 (Version None)
Quarter: 2009Q3

REPORT INFORMATION
  Report Type: 
  Country: None (occurrence: None)
  Receive Date: 20090806
  Receipt Date: 20090730
  Transmission Date: 20100115
  Serious: Yes (Hospitalization)
  Sender: FDA-Public Use
  Company Number: B0559477A

PATIENT
  Sex: Female
  Weight: 47 kg

DRUGS (7)
  1. VALTREX [Suspect]
     Indication: HERPES ZOSTER
     Dosage: 1000MG TWICE PER DAY
     Route: 048
     Dates: start: 20090209, end: 20090211
  2. AMLODIPINE [Concomitant]
     Dosage: 10MG PER DAY
     Route: 048
  3. ALLOZYM [Concomitant]
     Dosage: 100MG PER DAY
     Route: 048
  4. ALLEGRA [Concomitant]
     Dosage: 120MG PER DAY
     Route: 048
  5. CHINESE MEDICINE [Concomitant]
     Dosage: 7.5G PER DAY
     Route: 048
  6. GASMOTIN [Concomitant]
     Dosage: 15MG PER DAY
     Route: 048
  7. KREMEZIN [Concomitant]
     Dosage: 6G PER DAY
     Route: 048

REACTIONS (10)
  - ALTERED STATE OF CONSCIOUSNESS [None]
  - ASTERIXIS [None]
  - DECREASED APPETITE [None]
  - DYSARTHRIA [None]
  - DYSKINESIA [None]
  - HYPERTENSION [None]
  - INTERVERTEBRAL DISC DISORDER [None]
  - NAUSEA [None]
  - PYREXIA [None]
  - VOMITING [None]
